FAERS Safety Report 22348030 (Version 1)
Quarter: 2023Q2

REPORT INFORMATION
  Report Type: Spontaneous
  Country: IT (occurrence: IT)
  Receive Date: 20230522
  Receipt Date: 20230522
  Transmission Date: 20230721
  Serious: Yes (Hospitalization, Other)
  Sender: FDA-Public Use
  Company Number: IT-ELI_LILLY_AND_COMPANY-IT202305001825

PATIENT
  Age: 75 Year
  Sex: Female

DRUGS (2)
  1. METFORMIN [Suspect]
     Active Substance: METFORMIN HYDROCHLORIDE
     Indication: Product used for unknown indication
     Dosage: UNK
     Route: 065
     Dates: end: 202304
  2. TRULICITY [Suspect]
     Active Substance: DULAGLUTIDE
     Indication: Diabetes mellitus
     Dosage: 0.75 MILLIGRAM
     Route: 065
     Dates: start: 202208

REACTIONS (17)
  - Pain [Unknown]
  - Bile duct stone [Unknown]
  - Azotaemia [Unknown]
  - Flatulence [Unknown]
  - Vomiting [Unknown]
  - Heart rate increased [Unknown]
  - White blood cell count abnormal [Unknown]
  - Dehydration [Unknown]
  - Blood glucose abnormal [Unknown]
  - Blood lactic acid increased [Unknown]
  - Blood pressure decreased [Unknown]
  - Injection site paraesthesia [Unknown]
  - Nausea [Unknown]
  - Paraesthesia [Unknown]
  - Abdominal distension [Unknown]
  - Constipation [Unknown]
  - Drug ineffective [Unknown]
